FAERS Safety Report 4853840-9 (Version None)
Quarter: 2005Q4

REPORT INFORMATION
  Report Type: 
  Country: None (occurrence: None)
  Receive Date: 20051213
  Receipt Date: 20051201
  Transmission Date: 20060501
  Serious: Yes (Disabling, Other)
  Sender: FDA-Public Use
  Company Number: USA-2005-0021920

PATIENT
  Age: 52 Year
  Sex: Female

DRUGS (1)
  1. OXYCONTIN [Suspect]
     Indication: PAIN
     Dosage: 140 MG,

REACTIONS (12)
  - ANOREXIA [None]
  - ARTHRITIS [None]
  - DIARRHOEA [None]
  - DRUG WITHDRAWAL SYNDROME [None]
  - ELECTROLYTE IMBALANCE [None]
  - FEELING ABNORMAL [None]
  - FEELING JITTERY [None]
  - IMPAIRED WORK ABILITY [None]
  - INSOMNIA [None]
  - LACRIMATION INCREASED [None]
  - SYSTEMIC LUPUS ERYTHEMATOSUS [None]
  - UNDERDOSE [None]
